FAERS Safety Report 4345763-9 (Version None)
Quarter: 2004Q2

REPORT INFORMATION
  Report Type: 
  Country: None (occurrence: None)
  Receive Date: 20040421
  Receipt Date: 20040405
  Transmission Date: 20050107
  Serious: Yes (Hospitalization)
  Sender: FDA-Public Use
  Company Number: 6008299

PATIENT
  Age: 72 Year
  Sex: Female

DRUGS (3)
  1. LEVOTHYROXINE SODIUM [Suspect]
     Indication: DRUG USE FOR UNKNOWN INDICATION
     Dosage: 100 MCG
     Route: 048
  2. TAMOXIFEN (TABLETS) (TAMOXIFEN) [Suspect]
     Dosage: 20 MG
     Route: 048
     Dates: start: 20001201
  3. VISKEN [Suspect]
     Dosage: 5 MG
     Route: 048

REACTIONS (1)
  - PHLEBITIS [None]
